FAERS Safety Report 23904289 (Version 1)
Quarter: 2024Q2

REPORT INFORMATION
  Report Type: Other
  Country: JP (occurrence: JP)
  Receive Date: 20240527
  Receipt Date: 20240527
  Transmission Date: 20240715
  Serious: Yes (Hospitalization, Other)
  Sender: FDA-Public Use
  Company Number: JP-B.Braun Medical Inc.-2157436

PATIENT
  Age: 39 Year
  Sex: Female
  Weight: 58 kg

DRUGS (2)
  1. DEXTROSE\MAGNESIUM SULFATE [Suspect]
     Active Substance: DEXTROSE\MAGNESIUM SULFATE
     Indication: Premature labour
     Route: 042
  2. RITODRINE [Suspect]
     Active Substance: RITODRINE

REACTIONS (3)
  - Hepatic function abnormal [Recovered/Resolved]
  - Maternal exposure during pregnancy [Recovered/Resolved]
  - Diabetes insipidus [Recovered/Resolved]
